FAERS Safety Report 24675625 (Version 2)
Quarter: 2024Q4

REPORT INFORMATION
  Report Type: Spontaneous
  Country: TW (occurrence: TW)
  Receive Date: 20241128
  Receipt Date: 20241203
  Transmission Date: 20250115
  Serious: Yes (Hospitalization, Other)
  Sender: PFIZER
  Company Number: TW-MLMSERVICE-20241119-PI262603-00218-1

PATIENT
  Age: 43 Year
  Sex: Male
  Weight: 117.8 kg

DRUGS (5)
  1. METHOTREXATE SODIUM [Suspect]
     Active Substance: METHOTREXATE SODIUM
     Indication: Diffuse large B-cell lymphoma
     Dosage: HIGH-DOSE, (9000 MG ACCORDING TO ADJUSTED BODY SURFACE AREA) FOR 12 HOURS ON DAY 1
  2. SODIUM CHLORIDE [Concomitant]
     Active Substance: SODIUM CHLORIDE
     Indication: Dehydration
     Dosage: 1000 ML EVERY 24 HOURS
  3. SODIUM BICARBONATE [Concomitant]
     Active Substance: SODIUM BICARBONATE
     Dosage: 33.2 MEQ SODIUM BICARBONATE IN 1000 ML 0.9% SALINE EVERY 24 HOURS
  4. LEUCOVORIN [Concomitant]
     Active Substance: LEUCOVORIN\LEUCOVORIN CALCIUM
     Dosage: 100 MG, 4X/DAY, SINCE DAY 3 MORNING (INFUSION)
  5. RITUXIMAB [Concomitant]
     Active Substance: RITUXIMAB
     Dosage: ADMINISTERED ON DAY 0

REACTIONS (6)
  - Acute kidney injury [Recovering/Resolving]
  - Toxicity to various agents [Recovering/Resolving]
  - Pancytopenia [Unknown]
  - Hepatitis [Unknown]
  - Gastrointestinal toxicity [Recovering/Resolving]
  - Decreased appetite [Recovering/Resolving]
